FAERS Safety Report 6715426-0 (Version None)
Quarter: 2010Q2

REPORT INFORMATION
  Report Type: 
  Country: None (occurrence: None)
  Receive Date: 20100507
  Receipt Date: 20100427
  Transmission Date: 20101027
  Serious: Yes (Hospitalization)
  Sender: FDA-Public Use
  Company Number: US-JNJFOC-20091102209

PATIENT
  Sex: Female

DRUGS (7)
  1. REMICADE [Suspect]
     Indication: COLITIS ULCERATIVE
     Route: 042
     Dates: start: 20090801
  2. PULMICORT [Concomitant]
  3. CYCLOBENZAPRINE [Concomitant]
  4. OMEPRAZOLE [Concomitant]
  5. PREDNISONE [Concomitant]
  6. PHENERGAN [Concomitant]
  7. AMBIEN [Concomitant]

REACTIONS (6)
  - APPENDICECTOMY [None]
  - CHOLECYSTECTOMY [None]
  - CYST [None]
  - GASTROINTESTINAL HAEMORRHAGE [None]
  - PARAESTHESIA [None]
  - THERAPEUTIC RESPONSE DECREASED [None]
